FAERS Safety Report 13122617 (Version 2)
Quarter: 2018Q1

REPORT INFORMATION
  Report Type: Spontaneous
  Country: US (occurrence: US)
  Receive Date: 20170117
  Receipt Date: 20180104
  Transmission Date: 20180508
  Serious: No
  Sender: FDA-Public Use
  Company Number: US-ALLERGAN-1656716US

PATIENT
  Sex: Female

DRUGS (2)
  1. DAPSONE UNK [Suspect]
     Active Substance: DAPSONE
     Indication: PRODUCT USED FOR UNKNOWN INDICATION
     Route: 061
  2. LYRICA [Concomitant]
     Active Substance: PREGABALIN
     Indication: HIV INFECTION
     Dosage: 150 MG, BID
     Route: 048

REACTIONS (1)
  - Drug hypersensitivity [Unknown]
